FAERS Safety Report 5944771-1 (Version None)
Quarter: 2008Q4

REPORT INFORMATION
  Report Type: 
  Country: None (occurrence: None)
  Receive Date: 20081106
  Receipt Date: 20081106
  Transmission Date: 20090506
  Serious: Yes (Hospitalization)
  Sender: FDA-Public Use
  Company Number: None

PATIENT
  Age: 86 Year
  Sex: Male
  Weight: 69 kg

DRUGS (1)
  1. WARFARIN SODIUM [Suspect]
     Indication: ANTICOAGULANT THERAPY
     Dosage: 2.5 MG ONCE AT BEDTIME PO
     Route: 048

REACTIONS (3)
  - FALL [None]
  - INTERNATIONAL NORMALISED RATIO INCREASED [None]
  - SUBARACHNOID HAEMORRHAGE [None]
